FAERS Safety Report 21959768 (Version 1)
Quarter: 2023Q1

REPORT INFORMATION
  Report Type: Report from Study
  Country: GB (occurrence: GB)
  Receive Date: 20230206
  Receipt Date: 20230206
  Transmission Date: 20230418
  Serious: Yes (Other)
  Sender: FDA-Public Use
  Company Number: GB-002147023-NVSC2023GB024760

PATIENT
  Sex: Female

DRUGS (1)
  1. HYRIMOZ [Suspect]
     Active Substance: ADALIMUMAB-ADAZ
     Indication: Psoriatic arthropathy
     Dosage: 40 MG, Q2W (SANDOZ LTD) 2 PRE-FILLED DISPOSABLE INJECTION
     Route: 058
     Dates: start: 20220923

REACTIONS (2)
  - Conjunctival haemorrhage [Not Recovered/Not Resolved]
  - Eczema [Not Recovered/Not Resolved]
